FAERS Safety Report 12201011 (Version 1)
Quarter: 2016Q1

REPORT INFORMATION
  Report Type: Report from Study
  Country: GB (occurrence: GB)
  Receive Date: 20160322
  Receipt Date: 20160322
  Transmission Date: 20160526
  Serious: Yes (Other)
  Sender: FDA-Public Use
  Company Number: GB-INCYTE CORPORATION-2015IN000532

PATIENT
  Age: 91 Year
  Sex: Male

DRUGS (5)
  1. ALLOPURINOL. [Concomitant]
     Active Substance: ALLOPURINOL
     Indication: PROPHYLAXIS
     Dosage: 3000 MG, UNK
     Route: 048
     Dates: start: 20140620, end: 20140908
  2. ADCAL [Concomitant]
     Indication: HYPOCALCAEMIA
     Dosage: UNK UNK, BID
     Route: 048
     Dates: start: 20130529, end: 20140908
  3. LOPERAMIDE [Concomitant]
     Active Substance: LOPERAMIDE
     Indication: SHORT-BOWEL SYNDROME
     Dosage: 2 MG, PRN
     Route: 048
     Dates: start: 20131101, end: 20140908
  4. JAKAFI [Suspect]
     Active Substance: RUXOLITINIB
     Indication: MYELOFIBROSIS
     Dosage: 10 MG, BID
     Route: 048
     Dates: start: 20120726
  5. CHOLECALCIFEROL [Concomitant]
     Active Substance: CHOLECALCIFEROL
     Indication: HYPOCALCAEMIA
     Dosage: 20000 U, BIW
     Route: 048
     Dates: start: 20130529, end: 20140908

REACTIONS (6)
  - Squamous cell carcinoma [Recovered/Resolved]
  - Basal cell carcinoma [Recovered/Resolved]
  - Skin infection [Recovered/Resolved]
  - Squamous cell carcinoma [Recovered/Resolved]
  - Squamous cell carcinoma [Recovered/Resolved]
  - Wound haemorrhage [Recovered/Resolved]

NARRATIVE: CASE EVENT DATE: 20140806
